FAERS Safety Report 7297089-1 (Version None)
Quarter: 2011Q1

REPORT INFORMATION
  Report Type: 
  Country: None (occurrence: None)
  Receive Date: 20110216
  Receipt Date: 20110214
  Transmission Date: 20110831
  Serious: Yes (Other)
  Sender: FDA-Public Use
  Company Number: US-PFIZER INC-2011032738

PATIENT
  Sex: Female
  Weight: 69.841 kg

DRUGS (2)
  1. CHANTIX [Suspect]
     Dosage: 0.5 MG, 2X/DAY
     Dates: start: 20110201, end: 20110213
  2. CHANTIX [Suspect]
     Indication: SMOKING CESSATION THERAPY
     Dosage: 0.5 MG, 1X/DAY
     Route: 048
     Dates: start: 20110209, end: 20110201

REACTIONS (1)
  - CONVULSION [None]
